FAERS Safety Report 8960559 (Version 1)
Quarter: 2012Q4

REPORT INFORMATION
  Report Type: Spontaneous
  Country: US (occurrence: None)
  Receive Date: 20121203
  Receipt Date: 20121203
  Transmission Date: 20130627
  Serious: Yes (Hospitalization)
  Sender: FDA-Public Use
  Company Number: 2012SUN00289

PATIENT
  Age: 42 Year
  Sex: Female

DRUGS (4)
  1. QUETIAPINE FUMARATE (QUETIAPINE FUMARATE) [Suspect]
     Indication: DEPRESSIVE DISORDER
  2. CITALOPRAM HBR [Suspect]
     Indication: DEPRESSIVE DISORDER
  3. ONDANSETRON [Suspect]
     Indication: DRUG USE FOR UNKNOWN INDICATION
     Dosage: Single dose
  4. AMPHETAMINE [Suspect]
     Indication: DEPRESSIVE DISORDER

REACTIONS (3)
  - Serotonin syndrome [None]
  - Facial bones fracture [None]
  - Post procedural complication [None]
